FAERS Safety Report 6493592-2 (Version None)
Quarter: 2009Q4

REPORT INFORMATION
  Report Type: 
  Country: None (occurrence: None)
  Receive Date: 20091214
  Receipt Date: 20091207
  Transmission Date: 20100525
  Serious: Yes (Other)
  Sender: FDA-Public Use
  Company Number: A0811905A

PATIENT
  Age: 56 Year
  Sex: Female

DRUGS (6)
  1. EPZICOM [Suspect]
     Indication: ANTIVIRAL TREATMENT
     Dosage: 4TAB PER DAY
     Route: 048
     Dates: start: 20060101, end: 20090901
  2. VIREAD [Concomitant]
  3. REYATAZ [Concomitant]
  4. NORVIR [Concomitant]
  5. CENTRUM [Concomitant]
  6. OTHER MEDICATIONS [Concomitant]

REACTIONS (8)
  - ABDOMINAL PAIN [None]
  - ALOPECIA [None]
  - BONE PAIN [None]
  - HYPERSENSITIVITY [None]
  - LACTIC ACIDOSIS [None]
  - MUSCULOSKELETAL PAIN [None]
  - PYREXIA [None]
  - RASH [None]
